FAERS Safety Report 23207816 (Version 1)
Quarter: 2023Q4

REPORT INFORMATION
  Report Type: Spontaneous
  Country: US (occurrence: US)
  Receive Date: 20231121
  Receipt Date: 20231121
  Transmission Date: 20240109
  Serious: No
  Sender: FDA-Public Use
  Company Number: US-drreddys-SPO/USA/23/0179581

PATIENT
  Age: 73 Year
  Sex: Female

DRUGS (1)
  1. HABITROL [Suspect]
     Active Substance: NICOTINE
     Indication: Product used for unknown indication
     Route: 062
     Dates: start: 20231004

REACTIONS (4)
  - Blister [Unknown]
  - Decubitus ulcer [Unknown]
  - Pruritus [Unknown]
  - Incorrect dose administered [Unknown]
